FAERS Safety Report 7771468-8 (Version None)
Quarter: 2011Q3

REPORT INFORMATION
  Report Type: 
  Country: None (occurrence: None)
  Receive Date: 20110922
  Receipt Date: 20110216
  Transmission Date: 20111222
  Serious: No
  Sender: FDA-Public Use
  Company Number: US-ASTRAZENECA-2011SE08954

PATIENT
  Age: 40 Year
  Sex: Female
  Weight: 39.5 kg

DRUGS (4)
  1. SEROQUEL XR [Suspect]
     Indication: ANXIETY
     Route: 048
     Dates: start: 20101001
  2. CLOZAPAM [Concomitant]
  3. HYDROXINE [Concomitant]
  4. MIRTAZAPINE [Concomitant]

REACTIONS (2)
  - ABNORMAL DREAMS [None]
  - NASOPHARYNGITIS [None]
